FAERS Safety Report 18273578 (Version 2)
Quarter: 2020Q4

REPORT INFORMATION
  Report Type: Spontaneous
  Country: JP (occurrence: JP)
  Receive Date: 20200916
  Receipt Date: 20201026
  Transmission Date: 20210113
  Serious: Yes (Death, Other)
  Sender: FDA-Public Use
  Company Number: JP-ELI_LILLY_AND_COMPANY-JP202009006040

PATIENT
  Age: 55 Year
  Sex: Female

DRUGS (2)
  1. CYRAMZA [Suspect]
     Active Substance: RAMUCIRUMAB
     Indication: GASTRIC CANCER RECURRENT
     Route: 041
  2. ABRAXANE [Concomitant]
     Active Substance: PACLITAXEL
     Indication: GASTRIC CANCER RECURRENT

REACTIONS (5)
  - Pneumonia [Fatal]
  - Neutropenia [Fatal]
  - Malignant neoplasm progression [Unknown]
  - Oedema [Unknown]
  - Atelectasis [Unknown]

NARRATIVE: CASE EVENT DATE: 20200721
